FAERS Safety Report 24691592 (Version 1)
Quarter: 2024Q4

REPORT INFORMATION
  Report Type: Spontaneous
  Country: US (occurrence: None)
  Receive Date: 20241203
  Receipt Date: 20241203
  Transmission Date: 20250114
  Serious: Yes (Hospitalization)
  Sender: Public
  Company Number: None

PATIENT
  Age: 79 Year
  Sex: Male
  Weight: 63 kg

DRUGS (1)
  1. APIXABAN [Suspect]
     Active Substance: APIXABAN
     Indication: Deep vein thrombosis
     Dosage: 5.00 MG TWICE A DY ORAL
     Route: 048
     Dates: start: 20240430

REACTIONS (11)
  - Dizziness [None]
  - Faeces discoloured [None]
  - Melaena [None]
  - Haemoglobin decreased [None]
  - Red blood cell transfusion [None]
  - Therapy interrupted [None]
  - Alcohol use [None]
  - Encephalopathy [None]
  - Delirium [None]
  - Hypophagia [None]
  - Procedure aborted [None]

NARRATIVE: CASE EVENT DATE: 20240618
